FAERS Safety Report 25518505 (Version 3)
Quarter: 2025Q3

REPORT INFORMATION
  Report Type: Report from Study
  Country: US (occurrence: US)
  Receive Date: 20250704
  Receipt Date: 20250809
  Transmission Date: 20251020
  Serious: Yes (Hospitalization)
  Sender: ALEXION PHARMACEUTICALS
  Company Number: US-AstraZeneca-CH-00902488A

PATIENT
  Sex: Male

DRUGS (2)
  1. SOLIRIS [Suspect]
     Active Substance: ECULIZUMAB
     Indication: Myasthenia gravis
     Route: 065
  2. VYVGART [Suspect]
     Active Substance: EFGARTIGIMOD ALFA-FCAB
     Route: 065

REACTIONS (7)
  - Blood pressure abnormal [Unknown]
  - Urinary tract infection [Unknown]
  - Exercise tolerance decreased [Unknown]
  - Muscle spasms [Recovered/Resolved]
  - Asthenia [Unknown]
  - Fatigue [Unknown]
  - Pain [Unknown]
